FAERS Safety Report 4999554-6 (Version None)
Quarter: 2006Q2

REPORT INFORMATION
  Report Type: 
  Country: None (occurrence: None)
  Receive Date: 20060511
  Receipt Date: 20041103
  Transmission Date: 20061013
  Serious: Yes (Life-Threatening, Hospitalization, Disabling, Other)
  Sender: FDA-Public Use
  Company Number: US-MERCK-0411USA00580

PATIENT
  Age: 64 Year
  Sex: Male
  Weight: 95 kg

DRUGS (15)
  1. VIOXX [Suspect]
     Indication: OSTEOARTHRITIS
     Route: 048
     Dates: start: 20010621, end: 20040901
  2. VIOXX [Suspect]
     Indication: ARTHRITIS
     Route: 048
     Dates: start: 20010621, end: 20040901
  3. CARDURA [Concomitant]
     Route: 065
  4. ZOCOR [Concomitant]
     Route: 048
  5. MICARDIS [Concomitant]
     Route: 065
  6. PREVACID [Concomitant]
     Route: 065
  7. PEPCID [Concomitant]
     Route: 065
  8. CALCIUM (UNSPECIFIED) [Concomitant]
     Route: 065
  9. VITA C [Concomitant]
     Route: 065
  10. ISOSORBIDE MONONITRATE [Concomitant]
     Route: 065
  11. ASPIRIN [Concomitant]
     Route: 065
  12. ASCORBIC ACID [Concomitant]
     Route: 065
  13. VITAMIN D (UNSPECIFIED) [Concomitant]
     Route: 065
  14. MAXZIDE [Concomitant]
     Route: 065
  15. TOPROL-XL [Concomitant]
     Route: 065

REACTIONS (11)
  - ABDOMINAL PAIN UPPER [None]
  - ACTIVITIES OF DAILY LIVING IMPAIRED [None]
  - BLOOD PRESSURE FLUCTUATION [None]
  - BRADYCARDIA [None]
  - CARDIAC DISORDER [None]
  - CEREBROVASCULAR ACCIDENT [None]
  - CHEST DISCOMFORT [None]
  - CHEST PAIN [None]
  - CORONARY ARTERY DISEASE [None]
  - HYPOTENSION [None]
  - SICK SINUS SYNDROME [None]
